FAERS Safety Report 6838854-1 (Version None)
Quarter: 2010Q3

REPORT INFORMATION
  Report Type: 
  Country: None (occurrence: None)
  Receive Date: 20100713
  Receipt Date: 20070823
  Transmission Date: 20110219
  Serious: No
  Sender: FDA-Public Use
  Company Number: US-PFIZER INC-2007050063

PATIENT
  Sex: Female
  Weight: 56.8 kg

DRUGS (4)
  1. CHANTIX [Suspect]
     Indication: SMOKING CESSATION THERAPY
     Dates: start: 20070405
  2. VALIUM [Concomitant]
  3. VASOTEC [Concomitant]
     Indication: HYPERTENSION
  4. MULTI-VITAMINS [Concomitant]

REACTIONS (4)
  - DECREASED APPETITE [None]
  - DRUG ADMINISTRATION ERROR [None]
  - INTENTIONAL DRUG MISUSE [None]
  - NAUSEA [None]
